FAERS Safety Report 21823552 (Version 1)
Quarter: 2023Q1

REPORT INFORMATION
  Report Type: Report from Study
  Country: US (occurrence: None)
  Receive Date: 20230105
  Receipt Date: 20230105
  Transmission Date: 20230418
  Serious: Yes (Death, Other)
  Sender: FDA-Public Use
  Company Number: 2023A002531

PATIENT
  Sex: Male

DRUGS (1)
  1. LYNPARZA [Suspect]
     Active Substance: OLAPARIB
     Indication: Pancreatic carcinoma
     Dosage: TAKE 2 TABLETS (200MG) BY MOUTH IN THE MORNING AND 1 TABLET (100MG) IN THE EVENING.
     Route: 048
     Dates: start: 202108

REACTIONS (2)
  - Death [Fatal]
  - Underdose [Unknown]
